FAERS Safety Report 4782426-X (Version None)
Quarter: 2005Q3

REPORT INFORMATION
  Report Type: 
  Country: None (occurrence: None)
  Receive Date: 20050929
  Receipt Date: 20041005
  Transmission Date: 20060218
  Serious: Yes (Other)
  Sender: FDA-Public Use
  Company Number: 382597

PATIENT
  Sex: Female

DRUGS (2)
  1. COREG [Suspect]
     Indication: DRUG USE FOR UNKNOWN INDICATION
     Route: 048
  2. SULFONYLUREA AGENT [Concomitant]

REACTIONS (1)
  - HYPOGLYCAEMIA [None]
